FAERS Safety Report 26218479 (Version 1)
Quarter: 2025Q4

REPORT INFORMATION
  Report Type: Spontaneous
  Country: JP (occurrence: JP)
  Receive Date: 20251231
  Receipt Date: 20251231
  Transmission Date: 20260118
  Serious: Yes (Other)
  Sender: AMGEN
  Company Number: JP-AMGEN-JPNSP2025255072

PATIENT
  Age: 8 Decade
  Sex: Female

DRUGS (1)
  1. IMDELLTRA [Suspect]
     Active Substance: TARLATAMAB-DLLE
     Indication: Product used for unknown indication
     Dosage: 1 MILLIGRAM, (DRIP INFUSION)
     Route: 040

REACTIONS (2)
  - Neoplasm [Unknown]
  - Pyrexia [Unknown]
